FAERS Safety Report 9990422 (Version 1)
Quarter: 2014Q1

REPORT INFORMATION
  Report Type: Report from Study
  Country: US (occurrence: US)
  Receive Date: 20140310
  Receipt Date: 20140310
  Transmission Date: 20141002
  Serious: No
  Sender: FDA-Public Use
  Company Number: US-ABBVIE-13P-163-1133225-00

PATIENT
  Age: 61 Year
  Sex: Female

DRUGS (12)
  1. HUMIRA [Suspect]
     Indication: CROHN^S DISEASE
     Dates: start: 20130613
  2. ASACOL [Concomitant]
     Indication: CROHN^S DISEASE
  3. PRILOSEC [Concomitant]
     Indication: GASTROOESOPHAGEAL REFLUX DISEASE
  4. CYCLOBENZAPRINE [Concomitant]
     Indication: MUSCLE RELAXANT THERAPY
     Dosage: HOUR OF SLEEP
  5. CALCIUM VIT D [Concomitant]
     Indication: PRODUCT USED FOR UNKNOWN INDICATION
     Dosage: DAILY
  6. ALLEGRA [Concomitant]
     Indication: HYPERSENSITIVITY
     Dosage: 180MG DAILY
  7. MERCAPTOPURINE [Concomitant]
     Indication: CROHN^S DISEASE
     Dosage: 50MG DAILY
  8. ZOLOFT [Concomitant]
     Indication: ANXIETY
     Dosage: 50MG DAILY
  9. VITAMIN B12 [Concomitant]
     Indication: PRODUCT USED FOR UNKNOWN INDICATION
  10. TOPROL [Concomitant]
     Indication: ARRHYTHMIA
     Dosage: 25MG DAILY
  11. VITAMIN D3 [Concomitant]
     Indication: PRODUCT USED FOR UNKNOWN INDICATION
     Dosage: 50000 IU DAILY
  12. LOPERAMIDE [Concomitant]
     Indication: DIARRHOEA
     Dosage: 2MG 1-2 CAPS 1-2 TIMES A DAY AS NEEDED

REACTIONS (4)
  - Gastrointestinal haemorrhage [Not Recovered/Not Resolved]
  - Drug ineffective [Not Recovered/Not Resolved]
  - Diarrhoea [Not Recovered/Not Resolved]
  - Abdominal pain [Not Recovered/Not Resolved]
